FAERS Safety Report 19707023 (Version 2)
Quarter: 2021Q3

REPORT INFORMATION
  Report Type: Spontaneous
  Country: DE (occurrence: DE)
  Receive Date: 20210817
  Receipt Date: 20210823
  Transmission Date: 20211014
  Serious: Yes (Life-Threatening, Hospitalization, Other)
  Sender: FDA-Public Use
  Company Number: DE-MYLANLABS-2021M1052008

PATIENT
  Age: 69 Year
  Sex: Female

DRUGS (14)
  1. ZINKAMIN?FALK [Concomitant]
     Dosage: 15 MILLIGRAM, QD, 1?0?0?0
  2. ENTRESTO [Concomitant]
     Active Substance: SACUBITRIL\VALSARTAN
     Indication: PULMONARY HYPERTENSION
     Dosage: UNK
     Dates: start: 20201119
  3. FOLIC ACID. [Concomitant]
     Active Substance: FOLIC ACID
     Dosage: 5 MILLIGRAM, QD, 1?0?0?0
  4. TORASEMIDE [Suspect]
     Active Substance: TORSEMIDE
     Indication: PRODUCT USED FOR UNKNOWN INDICATION
     Dosage: 10 MILLIGRAM, 2?2?0?0
  5. SPIRONOLACTON [Interacting]
     Active Substance: SPIRONOLACTONE
     Indication: PULMONARY HYPERTENSION
     Dosage: 50 MILLIGRAM, QD, 1?0?0?0
     Dates: start: 20201119
  6. LEVOTHYROXINE SODIUM. [Concomitant]
     Active Substance: LEVOTHYROXINE SODIUM
     Dosage: 50 MICROGRAM, QD, 1?0?0?0
  7. MARCUMAR [Interacting]
     Active Substance: PHENPROCOUMON
     Indication: PRODUCT USED FOR UNKNOWN INDICATION
     Dosage: 3 MG, ACCORDING TO INR
  8. DEKRISTOL NEU [Concomitant]
     Dosage: 20000 IE [PRESUMABLY: INTERNATIONAL UNIT] / WEEK, 2X
  9. EZETIMIBE. [Concomitant]
     Active Substance: EZETIMIBE
     Dosage: 10 MILLIGRAM, QD, 0?0?1?0
  10. ESOMEPRAZOL                        /01479301/ [Concomitant]
     Active Substance: ESOMEPRAZOLE
     Dosage: 20 MILLIGRAM, QD, 0?0?1?0
  11. METOPROLOL. [Concomitant]
     Active Substance: METOPROLOL
     Dosage: 95 MILLIGRAM, 1?0?0.5?0
  12. ATORVASTATIN [Concomitant]
     Active Substance: ATORVASTATIN
     Dosage: 40 MILLIGRAM, QD, 0?0?1?0
  13. PREGABALIN. [Concomitant]
     Active Substance: PREGABALIN
     Dosage: 150 MILLIGRAM, BID, 1?0?1?0
  14. ENTRESTO [Interacting]
     Active Substance: SACUBITRIL\VALSARTAN
     Indication: PRODUCT USED FOR UNKNOWN INDICATION
     Dosage: 49|51 MGMILLIGRAM, 1?0?1?0

REACTIONS (10)
  - Acute kidney injury [Unknown]
  - Hyperkalaemia [Unknown]
  - Psychomotor retardation [Unknown]
  - Product monitoring error [Unknown]
  - Gastrointestinal haemorrhage [Unknown]
  - Labelled drug-drug interaction medication error [Unknown]
  - Anaemia [Unknown]
  - Product prescribing error [Unknown]
  - Asthenia [Unknown]
  - Thrombocytopenia [Unknown]
